FAERS Safety Report 25211279 (Version 1)
Quarter: 2025Q2

REPORT INFORMATION
  Report Type: Spontaneous
  Country: US (occurrence: US)
  Receive Date: 20250417
  Receipt Date: 20250417
  Transmission Date: 20250717
  Serious: No
  Sender: BAUSCH AND LOMB
  Company Number: US-BAUSCHBL-2025BNL006478

PATIENT
  Age: 74 Year
  Sex: Female

DRUGS (1)
  1. XIIDRA [Suspect]
     Active Substance: LIFITEGRAST
     Indication: Dry eye
     Route: 047

REACTIONS (10)
  - Palpitations [Unknown]
  - Nausea [Unknown]
  - Sensation of foreign body [Unknown]
  - Pain [Unknown]
  - Abdominal discomfort [Unknown]
  - Periorbital swelling [Unknown]
  - Eye irritation [Unknown]
  - Vision blurred [Unknown]
  - Dysgeusia [Unknown]
  - Product after taste [Unknown]
